FAERS Safety Report 24007110 (Version 1)
Quarter: 2024Q2

REPORT INFORMATION
  Report Type: Report from Study
  Country: CN (occurrence: CN)
  Receive Date: 20240624
  Receipt Date: 20240624
  Transmission Date: 20240715
  Serious: Yes (Other)
  Sender: FDA-Public Use
  Company Number: CN-GUERBET / FUNDTRIP PHARMACEUTICALS-CN-20240162

PATIENT

DRUGS (3)
  1. ETHIODIZED OIL [Suspect]
     Active Substance: ETHIODIZED OIL
     Indication: Transcatheter arterial chemoembolisation
     Dosage: A MIXTURE OF 10 TO 20 ML OF ETHIODIZED OIL WITH 10 TO 20 MG OF HYDROXYCAMPTOTHECIN (GEL FOAM PARTICL
     Route: 013
  2. 10-HYDROXYCAMPTOTHECIN [Suspect]
     Active Substance: 10-HYDROXYCAMPTOTHECIN
     Indication: Transcatheter arterial chemoembolisation
     Dosage: A MIXTURE OF 10 TO 20 ML OF ETHIODIZED OIL WITH 10 TO 20 MG OF HYDROXYCAMPTOTHECIN (GEL FOAM PARTICL
     Route: 013
  3. EPIRUBICIN [Suspect]
     Active Substance: EPIRUBICIN
     Indication: Transcatheter arterial chemoembolisation
     Dosage: A MIXTURE OF 10 TO 20 ML OF ETHIODIZED OIL WITH 10 TO 20 MG OF HYDROXYCAMPTOTHECIN (GEL FOAM PARTICL
     Route: 013

REACTIONS (2)
  - Liver abscess [Recovering/Resolving]
  - Product use in unapproved indication [Recovering/Resolving]
